FAERS Safety Report 6746363-3 (Version None)
Quarter: 2010Q2

REPORT INFORMATION
  Report Type: 
  Country: None (occurrence: None)
  Receive Date: 20100528
  Receipt Date: 20100518
  Transmission Date: 20101027
  Serious: Yes (Hospitalization, Other)
  Sender: FDA-Public Use
  Company Number: US-SANOFI-AVENTIS-2010SA024019

PATIENT
  Age: 75 Year
  Sex: Male
  Weight: 72.57 kg

DRUGS (15)
  1. AMBIEN [Suspect]
     Route: 048
     Dates: start: 20091208, end: 20100415
  2. ASPIRIN [Concomitant]
     Route: 048
  3. MULTIVITAMIN [Concomitant]
     Dosage: 1 PER DAY
  4. DOCUSATE SODIUM [Concomitant]
     Route: 065
  5. CALCIUM/VITAMIN D [Concomitant]
     Route: 065
  6. MULTI-VITAMINS [Concomitant]
     Dosage: 1 PER DAY
     Route: 065
  7. ALENDRONATE [Concomitant]
     Route: 065
  8. KLOR-CON [Concomitant]
     Route: 065
  9. HYDROCHLOROTHIAZIDE [Concomitant]
     Route: 065
  10. LOVASTATIN [Concomitant]
     Route: 065
  11. AMLODIPINE BESYLATE [Concomitant]
     Dosage: 1/2 IN AM AND 1/2 IN PM
     Route: 065
  12. LISINOPRIL [Concomitant]
     Dosage: 1/2 TAB IN AM AND 1/2 TAB IN PM
     Route: 065
  13. CARVEDILOL [Concomitant]
     Route: 065
  14. VICODIN [Concomitant]
     Dosage: 5MG/500MG - 1-5 DAY
     Route: 065
  15. FLUTICASONE PROPIONATE [Concomitant]
     Dosage: 2 SPRAYS
     Route: 065

REACTIONS (14)
  - ABASIA [None]
  - ANGER [None]
  - ASTHENIA [None]
  - BALANCE DISORDER [None]
  - CONFUSIONAL STATE [None]
  - CONVULSION [None]
  - DEPRESSED LEVEL OF CONSCIOUSNESS [None]
  - DISORIENTATION [None]
  - DRUG ADMINISTRATION ERROR [None]
  - DYSSTASIA [None]
  - FEELING ABNORMAL [None]
  - HEART RATE INCREASED [None]
  - TRANSIENT ISCHAEMIC ATTACK [None]
  - TREMOR [None]
